FAERS Safety Report 5985044-0 (Version None)
Quarter: 2008Q4

REPORT INFORMATION
  Report Type: 
  Country: None (occurrence: None)
  Receive Date: 20081208
  Receipt Date: 20080617
  Transmission Date: 20090506
  Serious: Yes (Hospitalization)
  Sender: FDA-Public Use
  Company Number: US-AMGEN-QUU287773

PATIENT
  Sex: Female

DRUGS (1)
  1. ENBREL [Suspect]
     Indication: ANKYLOSING SPONDYLITIS
     Route: 058
     Dates: start: 20060601

REACTIONS (5)
  - EAR INFECTION [None]
  - ESCHERICHIA SEPSIS [None]
  - KIDNEY INFECTION [None]
  - PNEUMONIA [None]
  - URINARY TRACT INFECTION [None]
